FAERS Safety Report 9958359 (Version 1)
Quarter: 2014Q1

REPORT INFORMATION
  Report Type: Report from Study
  Country: US (occurrence: US)
  Receive Date: 20140305
  Receipt Date: 20140305
  Transmission Date: 20141002
  Serious: Yes (Other)
  Sender: FDA-Public Use
  Company Number: US-ROCHE-1340335

PATIENT
  Sex: Female

DRUGS (3)
  1. LUCENTIS [Suspect]
     Indication: VENOUS OCCLUSION
     Dosage: IN 0.05 ML OD
     Route: 050
     Dates: start: 20110224
  2. LUCENTIS [Suspect]
     Indication: RETINAL OEDEMA
  3. AVASTIN [Suspect]
     Indication: RETINAL VEIN OCCLUSION
     Route: 065
     Dates: start: 20101221

REACTIONS (5)
  - Cystoid macular oedema [Unknown]
  - Vision blurred [Unknown]
  - Eye pain [Unknown]
  - Vitreous floaters [Unknown]
  - Vitreous detachment [Unknown]
